FAERS Safety Report 20561546 (Version 5)
Quarter: 2022Q3

REPORT INFORMATION
  Report Type: Spontaneous
  Country: CN (occurrence: CN)
  Receive Date: 20220307
  Receipt Date: 20220921
  Transmission Date: 20221027
  Serious: Yes (Other)
  Sender: FDA-Public Use
  Company Number: CN-BAYER-2022A028998

PATIENT
  Age: 39 Year
  Sex: Female

DRUGS (5)
  1. YAZ [Suspect]
     Active Substance: DROSPIRENONE\ETHINYL ESTRADIOL
     Indication: Heavy menstrual bleeding
     Dosage: UNK
     Route: 048
     Dates: start: 2020, end: 2021
  2. YAZ [Suspect]
     Active Substance: DROSPIRENONE\ETHINYL ESTRADIOL
     Indication: Menstrual cycle management
     Dosage: UNK
     Route: 048
     Dates: start: 20220201, end: 2022
  3. YAZ [Suspect]
     Active Substance: DROSPIRENONE\ETHINYL ESTRADIOL
     Indication: Heavy menstrual bleeding
     Dosage: 0.5 DF, QD
     Route: 048
     Dates: start: 2022, end: 20220321
  4. OMEPRAZOLE [Concomitant]
     Active Substance: OMEPRAZOLE
     Indication: Antacid therapy
     Route: 048
  5. VOCINTI [Concomitant]
     Dosage: UNK
     Route: 048
     Dates: start: 2022

REACTIONS (28)
  - Intraocular pressure increased [Not Recovered/Not Resolved]
  - Breast swelling [Recovering/Resolving]
  - Tension headache [Not Recovered/Not Resolved]
  - Diarrhoea [None]
  - Dizziness [Not Recovered/Not Resolved]
  - Lethargy [None]
  - Abdominal pain [None]
  - Asthenia [None]
  - Hypoaesthesia [None]
  - Muscular weakness [None]
  - Dysstasia [None]
  - Hypoaesthesia [None]
  - Insomnia [Not Recovered/Not Resolved]
  - Poor quality sleep [None]
  - Dyspnoea [None]
  - Breast pain [Recovering/Resolving]
  - Premenstrual syndrome [None]
  - Eye swelling [None]
  - Nausea [None]
  - Abdominal discomfort [None]
  - Eye disorder [Not Recovered/Not Resolved]
  - Anxiety [Not Recovered/Not Resolved]
  - Abdominal pain upper [Not Recovered/Not Resolved]
  - Mucous stools [None]
  - Off label use [None]
  - Wrong technique in product usage process [None]
  - Drug effective for unapproved indication [None]
  - Intentional underdose [None]

NARRATIVE: CASE EVENT DATE: 20220101
